FAERS Safety Report 20993810 (Version 2)
Quarter: 2022Q3

REPORT INFORMATION
  Report Type: Spontaneous
  Country: US (occurrence: US)
  Receive Date: 20220622
  Receipt Date: 20220705
  Transmission Date: 20221027
  Serious: Yes (Other)
  Sender: FDA-Public Use
  Company Number: US-NALPROPION PHARMACEUTICALS INC.-US-2022CUR021882

PATIENT
  Sex: Male

DRUGS (6)
  1. CONTRAVE [Suspect]
     Active Substance: BUPROPION HYDROCHLORIDE\NALTREXONE HYDROCHLORIDE
     Indication: Weight control
     Dosage: STRENGTH 8/90MG, 2 DOSES IN THE MORNING AND 2 DOSES AT NIGHT
     Route: 048
     Dates: start: 20220523, end: 2022
  2. CONTRAVE [Suspect]
     Active Substance: BUPROPION HYDROCHLORIDE\NALTREXONE HYDROCHLORIDE
     Dosage: STRENGTH 8/90MG: STARTED TITRATION AGAIN
     Route: 048
     Dates: start: 2022, end: 2022
  3. CONTRAVE [Suspect]
     Active Substance: BUPROPION HYDROCHLORIDE\NALTREXONE HYDROCHLORIDE
     Dosage: STRENGTH 8/90MG, 3 PILLS PER DAY REGIMEN
     Route: 048
     Dates: start: 202206
  4. FARXIGA [Concomitant]
     Active Substance: DAPAGLIFLOZIN PROPANEDIOL
     Indication: Chronic kidney disease
     Dosage: 10 MG, QD FOR THE PAST 6 MONTHS
     Dates: start: 2022
  5. ALPRAZOLAM [Concomitant]
     Active Substance: ALPRAZOLAM
     Indication: Anxiety disorder
     Dosage: 5 MG, PRN FOR SEVERAL YEARS
  6. CELEXA [Concomitant]
     Active Substance: CITALOPRAM HYDROBROMIDE
     Indication: Product used for unknown indication
     Dosage: 40 MG, QD FOR THE LAST 3 YEARS

REACTIONS (10)
  - Polyneuropathy [Unknown]
  - Anxiety disorder [Not Recovered/Not Resolved]
  - Panic disorder [Unknown]
  - Sensory loss [Unknown]
  - Bruxism [Not Recovered/Not Resolved]
  - Condition aggravated [Not Recovered/Not Resolved]
  - Sleep disorder [Unknown]
  - Abnormal dreams [Unknown]
  - Drug titration error [Unknown]
  - Product label issue [Unknown]

NARRATIVE: CASE EVENT DATE: 20220101
